FAERS Safety Report 8119374-3 (Version None)
Quarter: 2012Q1

REPORT INFORMATION
  Report Type: 
  Country: None (occurrence: None)
  Receive Date: 20120203
  Receipt Date: 20120123
  Transmission Date: 20120608
  Serious: Yes (Other)
  Sender: FDA-Public Use
  Company Number: B0778815A

PATIENT

DRUGS (3)
  1. HYCAMTIN [Suspect]
     Indication: CERVIX CARCINOMA
     Dosage: 5 MG/M2, CYCLIC, INTRAVENOUS
     Route: 042
  2. RADIOTHERAPY (RADIOTHERAPY) [Suspect]
     Indication: CERVIX CARCINOMA
  3. CISPLATIN [Suspect]
     Indication: CERVIX CARCINOMA
     Dosage: 40 MG/M2

REACTIONS (5)
  - GAMMA-GLUTAMYLTRANSFERASE ABNORMAL [None]
  - THROMBOCYTOPENIA [None]
  - TOXICITY TO VARIOUS AGENTS [None]
  - ABDOMINAL PAIN [None]
  - INCORRECT DOSE ADMINISTERED [None]
